FAERS Safety Report 7420319-X (Version None)
Quarter: 2011Q2

REPORT INFORMATION
  Report Type: 
  Country: None (occurrence: None)
  Receive Date: 20110418
  Receipt Date: 20110406
  Transmission Date: 20111010
  Serious: Yes (Other)
  Sender: FDA-Public Use
  Company Number: PHHY2011BR29426

PATIENT
  Sex: Male

DRUGS (3)
  1. TEGRETOL [Suspect]
     Indication: CONVULSION
     Dosage: 200 MG, BID
  2. TEGRETOL-XR [Suspect]
     Dosage: 400 MG, BID
  3. TEGRETOL [Suspect]
     Dosage: 300 (UNSPECIFIED UNIT) HALF DOSE TWICE A DAY

REACTIONS (3)
  - CONVULSION [None]
  - ROAD TRAFFIC ACCIDENT [None]
  - PETIT MAL EPILEPSY [None]
